FAERS Safety Report 21735875 (Version 1)
Quarter: 2022Q4

REPORT INFORMATION
  Report Type: Report from Study
  Country: IT (occurrence: IT)
  Receive Date: 20221215
  Receipt Date: 20221215
  Transmission Date: 20230113
  Serious: Yes (Other)
  Sender: FDA-Public Use
  Company Number: None

PATIENT
  Age: 17 Year
  Sex: Female
  Weight: 53 kg

DRUGS (6)
  1. IDARUBICIN [Suspect]
     Active Substance: IDARUBICIN
     Indication: Acute lymphocytic leukaemia recurrent
     Dosage: 9 MG, DAILY (9 MG/DAY ON 31OCT, 07NOV, 14NOV, 21NOV/22)
     Route: 042
     Dates: start: 20221031, end: 20221121
  2. ONCASPAR [Suspect]
     Active Substance: PEGASPARGASE
     Indication: Acute lymphocytic leukaemia recurrent
     Dosage: 1.544 IU (1.544 UI ON19/SEP, 03OCT, 31OCT, 07NOV, 14NOV, 21NOV22)
     Route: 042
     Dates: start: 20221031, end: 20221121
  3. METHOTREXATE SODIUM [Suspect]
     Active Substance: METHOTREXATE SODIUM
     Indication: Acute lymphocytic leukaemia recurrent
     Dosage: 154 MG, DAILY (154 MG/DIE INTRAVENOUS ON 15SEP 1.389 MG/DIE ON15SEP)
     Route: 042
     Dates: start: 20220915, end: 20220915
  4. CYTARABINE [Suspect]
     Active Substance: CYTARABINE
     Indication: Acute lymphocytic leukaemia recurrent
     Dosage: 4630 MG, DAILY (4630 MG/DIE FROM 28/SEP TO 30/SEP/22  )
     Route: 042
     Dates: start: 20220928, end: 20220930
  5. VINCRISTINE [Suspect]
     Active Substance: VINCRISTINE
     Indication: Acute lymphocytic leukaemia recurrent
     Dosage: 2 MG, DAILY (2 MG/DIE INTRAVENOUS ON 15SEP, 20SEP, 29SEP, 31OCT, 07OCT, 14OCT, 21/NOV/22)
     Route: 042
     Dates: start: 20220915, end: 20221121
  6. TRIPTORELIN [Concomitant]
     Active Substance: TRIPTORELIN
     Dosage: 1 INTRAMUSCULAR VIAL ON 14SEP, 06OCT22
     Route: 030
     Dates: start: 20220914, end: 20221006

REACTIONS (9)
  - Cholestatic liver injury [Recovering/Resolving]
  - Jaundice hepatocellular [Recovering/Resolving]
  - Escherichia bacteraemia [Recovered/Resolved]
  - Pancytopenia [Not Recovered/Not Resolved]
  - Pain in extremity [Recovering/Resolving]
  - Limb discomfort [Recovering/Resolving]
  - Anaemia [Not Recovered/Not Resolved]
  - Photophobia [Recovering/Resolving]
  - Constipation [Recovering/Resolving]

NARRATIVE: CASE EVENT DATE: 20220920
